FAERS Safety Report 6694462-7 (Version None)
Quarter: 2010Q2

REPORT INFORMATION
  Report Type: 
  Country: None (occurrence: None)
  Receive Date: 20100423
  Receipt Date: 20100412
  Transmission Date: 20101027
  Serious: Yes (Other)
  Sender: FDA-Public Use
  Company Number: US-PFIZER INC-2010046561

PATIENT
  Sex: Male
  Weight: 63.492 kg

DRUGS (10)
  1. XANAX [Suspect]
     Indication: INSOMNIA
     Dosage: 2 MG, 3X/DAY
     Route: 048
  2. RIBAVIRIN [Suspect]
     Dosage: UNK
  3. NEUPOGEN [Suspect]
     Indication: WHITE BLOOD CELL COUNT DECREASED
     Dosage: UNK
  4. BUPRENORPHINE HCL AND NALOXONE HCL [Suspect]
     Dosage: UNK
  5. INTERFERON [Suspect]
     Indication: HEPATITIS C
     Dosage: UNK
  6. TEMAZEPAM [Suspect]
     Indication: INSOMNIA
     Dosage: UNK
  7. ZYPREXA [Suspect]
     Indication: ANXIETY
     Dosage: 5 MG AS NEEDED
     Dates: start: 20100401
  8. ZYPREXA [Suspect]
     Indication: TACHYPHRENIA
  9. FENTANYL-100 [Suspect]
     Indication: DRUG THERAPY
     Dosage: 7 MG, 1X/DAY
  10. HYDROCODONE [Concomitant]
     Dosage: UNK

REACTIONS (12)
  - ANXIETY [None]
  - DEPRESSION [None]
  - DRUG DEPENDENCE [None]
  - DRUG INEFFECTIVE [None]
  - EATING DISORDER [None]
  - INSOMNIA [None]
  - INTENTIONAL DRUG MISUSE [None]
  - MALAISE [None]
  - RESTLESS LEGS SYNDROME [None]
  - SEDATION [None]
  - WEIGHT DECREASED [None]
  - WHITE BLOOD CELL COUNT DECREASED [None]
